FAERS Safety Report 16362204 (Version 1)
Quarter: 2019Q2

REPORT INFORMATION
  Report Type: Spontaneous
  Country: GB (occurrence: GB)
  Receive Date: 20190528
  Receipt Date: 20190528
  Transmission Date: 20190711
  Serious: Yes (Other)
  Sender: FDA-Public Use
  Company Number: GB-SA-2019SA142465

PATIENT
  Age: 25 Year
  Sex: Female
  Weight: 47 kg

DRUGS (8)
  1. G-CSF [Concomitant]
     Active Substance: GRANULOCYTE COLONY-STIMULATING FACTOR NOS
     Dosage: 526 UG, QD
     Dates: start: 20180302, end: 20180307
  2. PARACETAMOL [Concomitant]
     Active Substance: ACETAMINOPHEN
     Indication: ARTHRALGIA
     Dosage: UNK
     Dates: start: 20170818
  3. BUSULFAN. [Suspect]
     Active Substance: BUSULFAN
     Indication: BONE MARROW CONDITIONING REGIMEN
     Dosage: 147 MG, QD
     Dates: start: 20190205, end: 20190208
  4. CALCIUM CARBONATE. [Concomitant]
     Active Substance: CALCIUM CARBONATE
     Indication: OSTEOPOROSIS
     Dosage: UNK
  5. FLUCLOXACILLIN [Concomitant]
     Active Substance: FLUCLOXACILLIN
     Indication: BARTHOLIN^S CYST
     Dosage: UNK
     Dates: start: 20171217
  6. PLERIXAFOR [Suspect]
     Active Substance: PLERIXAFOR
     Dosage: 10.8 MG, QD
     Dates: start: 20180305, end: 20180306
  7. VITAMIN D3 [Concomitant]
     Active Substance: CHOLECALCIFEROL
     Indication: VITAMIN D DEFICIENCY
     Dosage: UNK
     Dates: start: 20170615
  8. ALENDRONIC ACID [Concomitant]
     Active Substance: ALENDRONIC ACID
     Indication: OSTEOPOROSIS
     Dosage: UNK
     Dates: start: 20170415

REACTIONS (16)
  - Pulmonary oedema [Unknown]
  - Stomatitis [Unknown]
  - Latent tuberculosis [Unknown]
  - Fungal infection [Unknown]
  - Palpitations [Unknown]
  - Neutrophil count abnormal [Unknown]
  - Oedema [Unknown]
  - Sarcoidosis [Unknown]
  - Febrile neutropenia [Unknown]
  - Systolic dysfunction [Unknown]
  - Cardiac failure congestive [Not Recovered/Not Resolved]
  - Ejection fraction decreased [Unknown]
  - Oxygen consumption increased [Unknown]
  - Dyspnoea [Unknown]
  - Pleural effusion [Unknown]
  - Left ventricular dilatation [Unknown]

NARRATIVE: CASE EVENT DATE: 201902
